FAERS Safety Report 21873582 (Version 1)
Quarter: 2023Q1

REPORT INFORMATION
  Report Type: Spontaneous
  Country: US (occurrence: US)
  Receive Date: 20230117
  Receipt Date: 20230117
  Transmission Date: 20230418
  Serious: Yes (Disabling)
  Sender: FDA-Public Use
  Company Number: US-ALLERGAN-2300539US

PATIENT
  Sex: Male
  Weight: 81.646 kg

DRUGS (1)
  1. REFRESH OPTIVE [Suspect]
     Active Substance: CARBOXYMETHYLCELLULOSE SODIUM\GLYCERIN
     Indication: Dry eye
     Dosage: 2 DROP PER EYE
     Route: 047
     Dates: start: 202212, end: 202212

REACTIONS (8)
  - Disability [Unknown]
  - Expired product administered [Unknown]
  - Visual impairment [Unknown]
  - Condition aggravated [Not Recovered/Not Resolved]
  - Eye injury [Unknown]
  - Gait inability [Unknown]
  - Eye irritation [Recovered/Resolved]
  - Vision blurred [Not Recovered/Not Resolved]

NARRATIVE: CASE EVENT DATE: 20221201
